FAERS Safety Report 4674487-3 (Version None)
Quarter: 2005Q2

REPORT INFORMATION
  Report Type: 
  Country: None (occurrence: None)
  Receive Date: 20050526
  Receipt Date: 20050513
  Transmission Date: 20051028
  Serious: Yes (Disabling)
  Sender: FDA-Public Use
  Company Number: CA-JNJFOC-20050404713

PATIENT
  Sex: Female

DRUGS (3)
  1. LEVAQUIN [Suspect]
     Indication: BRONCHITIS
  2. SINEMET [Interacting]
  3. SINEMET [Interacting]
     Indication: PARKINSON'S DISEASE
     Dosage: SINEMET DOSE 100/25 MG.    DOSE 4 (1/2) TABS QD

REACTIONS (5)
  - ARTHRALGIA [None]
  - ASTHENIA [None]
  - DRUG INTERACTION [None]
  - MOBILITY DECREASED [None]
  - MYALGIA [None]
